FAERS Safety Report 22021872 (Version 1)
Quarter: 2023Q1

REPORT INFORMATION
  Report Type: Spontaneous
  Country: US (occurrence: None)
  Receive Date: 20230218
  Receipt Date: 20230218
  Transmission Date: 20230417
  Serious: Yes (Disabling)
  Sender: FDA-Public Use
  Company Number: None

PATIENT
  Age: 65 Year
  Sex: Female
  Weight: 78.75 kg

DRUGS (12)
  1. AMLODIPINE [Suspect]
     Active Substance: AMLODIPINE BESYLATE
     Dosage: OTHER QUANTITY : 90 TABLET(S);?FREQUENCY : AT BEDTIME;?
     Route: 048
     Dates: start: 20220901, end: 20230115
  2. ATORVASTATIN [Concomitant]
     Active Substance: ATORVASTATIN
  3. LOSARTAN [Concomitant]
     Active Substance: LOSARTAN
  4. HYDROCHLOROTHIAZIDE [Concomitant]
     Active Substance: HYDROCHLOROTHIAZIDE
  5. CLOPIDOGREL [Concomitant]
     Active Substance: CLOPIDOGREL BISULFATE
  6. Aspirin [Concomitant]
  7. GABAPENTIN [Concomitant]
     Active Substance: GABAPENTIN
  8. DICLOFENAC SODIUM [Concomitant]
     Active Substance: DICLOFENAC SODIUM
  9. VITAMINS [Concomitant]
     Active Substance: VITAMINS
  10. High omega 3 fish oil [Concomitant]
  11. Magnesium and potassium [Concomitant]
  12. OLIVE OIL [Concomitant]
     Active Substance: OLIVE OIL

REACTIONS (17)
  - Urinary incontinence [None]
  - Headache [None]
  - Tachycardia [None]
  - Pruritus [None]
  - Liver injury [None]
  - Joint swelling [None]
  - Tinnitus [None]
  - Sciatica [None]
  - Brain oedema [None]
  - Sinus congestion [None]
  - Skin discolouration [None]
  - Fluid retention [None]
  - Balance disorder [None]
  - Neuropathy peripheral [None]
  - Psoriasis [None]
  - Rash pruritic [None]
  - Secretion discharge [None]

NARRATIVE: CASE EVENT DATE: 20221101
